FAERS Safety Report 4373416-X (Version None)
Quarter: 2004Q2

REPORT INFORMATION
  Report Type: 
  Country: None (occurrence: None)
  Receive Date: 20040603
  Receipt Date: 20040524
  Transmission Date: 20050107
  Serious: Yes (Hospitalization)
  Sender: FDA-Public Use
  Company Number: 2004215472GB

PATIENT
  Age: 71 Year
  Sex: Female

DRUGS (6)
  1. CABASER (CABERGOLINE) TABLET, 1-4MG [Suspect]
     Indication: PARKINSON'S DISEASE
     Dosage: 4 MG/DAY, ORAL
     Route: 048
     Dates: start: 20030101, end: 20040112
  2. BENDROFLUAZIDE [Concomitant]
  3. SINEMET [Concomitant]
  4. THYROXINE SODIUM (LEVOTHYROXINE SODIUM) [Concomitant]
  5. DOMPERIDONE (DOMPERIDONE) [Concomitant]
  6. ZOPICLONE [Concomitant]

REACTIONS (3)
  - AORTIC VALVE INCOMPETENCE [None]
  - MITRAL VALVE INCOMPETENCE [None]
  - TRICUSPID VALVE INCOMPETENCE [None]
